FAERS Safety Report 17893901 (Version 1)
Quarter: 2020Q2

REPORT INFORMATION
  Report Type: Spontaneous
  Country: US (occurrence: US)
  Receive Date: 20200615
  Receipt Date: 20200615
  Transmission Date: 20200714
  Serious: No
  Sender: FDA-Public Use
  Company Number: US-BAUSCH-BL-2020-015488

PATIENT
  Sex: Male

DRUGS (3)
  1. LATANOPROST OPHTHALMIC SOLUTION 0.005% [Suspect]
     Active Substance: LATANOPROST
     Dosage: 1 GTT IN EACH EYE AT BED TIME. STARTED WITH NEW BOTTLE
     Route: 047
     Dates: start: 202005
  2. LATANOPROST OPHTHALMIC SOLUTION 0.005% [Suspect]
     Active Substance: LATANOPROST
     Dosage: 1 GTT IN EACH EYE AT BED TIME. OPENED A NEW BOTTLE.
     Route: 047
     Dates: start: 202005, end: 202005
  3. LATANOPROST OPHTHALMIC SOLUTION 0.005% [Suspect]
     Active Substance: LATANOPROST
     Indication: INTRAOCULAR PRESSURE TEST ABNORMAL
     Dosage: 1 GTT IN EACH EYE AT NIGHT (STARTED FOR SEVERAL YEARS AGO)
     Route: 047
     Dates: end: 2020

REACTIONS (2)
  - Product quality issue [Unknown]
  - Eye irritation [Recovered/Resolved]

NARRATIVE: CASE EVENT DATE: 202005
